FAERS Safety Report 6822762-6 (Version None)
Quarter: 2010Q3

REPORT INFORMATION
  Report Type: 
  Country: None (occurrence: None)
  Receive Date: 20100708
  Receipt Date: 20100628
  Transmission Date: 20110219
  Serious: Yes (Hospitalization)
  Sender: FDA-Public Use
  Company Number: IT-PFIZER INC-2010036809

PATIENT
  Age: 20 Year
  Sex: Female

DRUGS (1)
  1. HALCION [Suspect]
     Indication: INTENTIONAL DRUG MISUSE
     Dosage: 20 DF, SINGLE
     Route: 048
     Dates: start: 20100218, end: 20100218

REACTIONS (2)
  - BRADYPHRENIA [None]
  - SOPOR [None]
